FAERS Safety Report 9271205 (Version 1)
Quarter: 2013Q2

REPORT INFORMATION
  Report Type: Spontaneous
  Country: GR (occurrence: GR)
  Receive Date: 20130506
  Receipt Date: 20130506
  Transmission Date: 20140414
  Serious: Yes (Hospitalization)
  Sender: FDA-Public Use
  Company Number: GR-AMGEN-GRCSP2013030619

PATIENT
  Sex: 0

DRUGS (5)
  1. VECTIBIX [Suspect]
     Indication: HEAD AND NECK CANCER METASTATIC
     Dosage: 6 MG/M2, IN CYCLES OF 2 WEEKS
  2. DOCETAXEL [Concomitant]
     Indication: HEAD AND NECK CANCER METASTATIC
     Dosage: 50 MG/M2, IN CYCLE OF 2 WEEKS
  3. CISPLATIN [Concomitant]
     Indication: HEAD AND NECK CANCER METASTATIC
     Dosage: 50 MG/M2, IN CYCLE OF 2 WEEKS
  4. G-CSF [Concomitant]
     Indication: PROPHYLAXIS
     Dosage: UNK
  5. ANTIEMETICS AND ANTINAUSEANTS [Concomitant]
     Indication: PROPHYLAXIS
     Dosage: UNK

REACTIONS (1)
  - Diarrhoea [Unknown]
